FAERS Safety Report 16522639 (Version 8)
Quarter: 2020Q1

REPORT INFORMATION
  Report Type: Report from Study
  Country: US (occurrence: US)
  Receive Date: 20190702
  Receipt Date: 20200305
  Transmission Date: 20200409
  Serious: Yes (Hospitalization, Other)
  Sender: FDA-Public Use
  Company Number: US-GLAXOSMITHKLINE-US2019115886

PATIENT
  Age: 29 Year
  Sex: Female
  Weight: 56.69 kg

DRUGS (1)
  1. BELIMUMAB [Suspect]
     Active Substance: BELIMUMAB
     Indication: SYSTEMIC LUPUS ERYTHEMATOSUS
     Dosage: 100 MG/KG
     Route: 042

REACTIONS (10)
  - Vaginal haemorrhage [Unknown]
  - Infertility female [Unknown]
  - Preterm premature rupture of membranes [Recovered/Resolved]
  - Anaemia of pregnancy [Unknown]
  - Exposure during pregnancy [Unknown]
  - Postpartum haemorrhage [Recovered/Resolved]
  - Uterine dilation and curettage [Unknown]
  - Live birth [Unknown]
  - Retained placenta or membranes [Unknown]
  - Premature delivery [Unknown]

NARRATIVE: CASE EVENT DATE: 20180327
